FAERS Safety Report 8561507-9 (Version None)
Quarter: 2012Q3

REPORT INFORMATION
  Report Type: 
  Country: None (occurrence: None)
  Receive Date: 20120802
  Receipt Date: 19970303
  Transmission Date: 20120928
  Serious: No
  Sender: FDA-Public Use
  Company Number: US-009507513-96081289

PATIENT

DRUGS (4)
  1. FOSAMAX [Suspect]
     Indication: OSTEOPOROSIS
     Dosage: 10 MG, QD
     Route: 048
     Dates: start: 19960201, end: 19970201
  2. LASIX [Concomitant]
     Dosage: 20 MG, UNK
     Dates: start: 19960523
  3. TYLENOL (CAPLET) [Concomitant]
  4. PAXIL [Concomitant]
     Dosage: 20 MG, UNK
     Dates: start: 19950101

REACTIONS (4)
  - CHEST PAIN [None]
  - MYALGIA [None]
  - HOT FLUSH [None]
  - DYSGEUSIA [None]
